FAERS Safety Report 16970242 (Version 2)
Quarter: 2020Q1

REPORT INFORMATION
  Report Type: Report from Study
  Country: ZA (occurrence: ZA)
  Receive Date: 20191029
  Receipt Date: 20200106
  Transmission Date: 20200409
  Serious: Yes (Hospitalization, Other)
  Sender: FDA-Public Use
  Company Number: PHHY2017ZA006008

PATIENT
  Age: 36 Year
  Sex: Female

DRUGS (4)
  1. TUVIGIN [Suspect]
     Active Substance: FINGOLIMOD HYDROCHLORIDE
     Indication: RELAPSING-REMITTING MULTIPLE SCLEROSIS
     Dosage: 0.5 MG, QD
     Route: 048
     Dates: start: 20160307
  2. TUVIGIN [Suspect]
     Active Substance: FINGOLIMOD HYDROCHLORIDE
     Dosage: 0.5 MG, QD
     Route: 048
  3. TUVIGIN [Suspect]
     Active Substance: FINGOLIMOD HYDROCHLORIDE
     Dosage: 0.5 MG, QD
     Route: 048
  4. TUVIGIN [Suspect]
     Active Substance: FINGOLIMOD HYDROCHLORIDE
     Dosage: 0.5 MG, QOD
     Route: 048

REACTIONS (15)
  - Eye disorder [Unknown]
  - Headache [Unknown]
  - Multiple sclerosis relapse [Recovering/Resolving]
  - White blood cell count decreased [Unknown]
  - Muscular weakness [Unknown]
  - Syncope [Unknown]
  - Dysarthria [Unknown]
  - Productive cough [Unknown]
  - Depression [Unknown]
  - Gait disturbance [Unknown]
  - Chest pain [Unknown]
  - Sputum discoloured [Unknown]
  - Monoparesis [Unknown]
  - Underdose [Unknown]
  - Optic neuritis [Unknown]

NARRATIVE: CASE EVENT DATE: 20170111
